FAERS Safety Report 9068246 (Version 1)
Quarter: 2013Q1

REPORT INFORMATION
  Report Type: Spontaneous
  Country: US (occurrence: US)
  Receive Date: 20130206
  Receipt Date: 20130206
  Transmission Date: 20140127
  Serious: No
  Sender: FDA-Public Use
  Company Number: US-BAYER-2013-013556

PATIENT
  Age: 41 Year
  Sex: Female
  Weight: 73.47 kg

DRUGS (4)
  1. ALEVE CAPLET/TABLET,MIDOL EXTENDED RELIEF CAPLET [Suspect]
     Indication: BACK PAIN
     Dosage: UNK
     Route: 048
     Dates: start: 2008
  2. HIGH BLOOD PRESSURE MEDICATION [Concomitant]
  3. KEPPRA [Concomitant]
  4. LEXAPRO [Concomitant]

REACTIONS (3)
  - Drug ineffective [None]
  - Overdose [None]
  - Incorrect drug administration duration [None]
